FAERS Safety Report 7536355-9 (Version None)
Quarter: 2011Q2

REPORT INFORMATION
  Report Type: 
  Country: None (occurrence: None)
  Receive Date: 20110602
  Receipt Date: 20110516
  Transmission Date: 20111010
  Serious: Yes (Hospitalization)
  Sender: FDA-Public Use
  Company Number: 7059665

PATIENT
  Age: 74 Year
  Sex: Female

DRUGS (8)
  1. LERCANIDIPINE [Concomitant]
  2. EUPRESSYL (URAPIDIL) [Concomitant]
  3. FLECAINIDE ACETATE [Concomitant]
  4. BISOPROLOL FUMARATE [Concomitant]
  5. PREVISCAN (PENTOXIFYLLINE) (FLUINDIONE) [Concomitant]
  6. LEVOTHYROXINE SODIUM [Suspect]
     Indication: PRODUCT USED FOR UNKNOWN INDICATION
     Dosage: 1 IN 1 D, ORAL
     Route: 048
  7. COTAREG (CO-DIOVAN) (COATED TABLET) (VALSARTAN, HYDROCHLORIDE) [Concomitant]
  8. CORDARONE [Suspect]
     Indication: PRODUCT USED FOR UNKNOWN INDICATION
     Dosage: 200 MG (200 MG 1 IN 1 D), ORAL
     Route: 048
     Dates: start: 20110430

REACTIONS (5)
  - HYPONATRAEMIA [None]
  - VOMITING [None]
  - CEREBELLAR SYNDROME [None]
  - INAPPROPRIATE ANTIDIURETIC HORMONE SECRETION [None]
  - NERVOUS SYSTEM DISORDER [None]
